FAERS Safety Report 6544287-8 (Version None)
Quarter: 2010Q1

REPORT INFORMATION
  Report Type: 
  Country: None (occurrence: None)
  Receive Date: 20100120
  Receipt Date: 20100111
  Transmission Date: 20100710
  Serious: Yes (Hospitalization)
  Sender: FDA-Public Use
  Company Number: US-ELI_LILLY_AND_COMPANY-US201001002163

PATIENT
  Age: 41 Year
  Sex: Female

DRUGS (3)
  1. ZYPREXA [Suspect]
     Indication: BIPOLAR DISORDER
     Dosage: 10 MG, UNK
     Dates: start: 20081001
  2. ZYPREXA [Suspect]
     Dosage: 15 MG, UNK
     Dates: end: 20090101
  3. ZYPREXA [Suspect]
     Dosage: 5 MG, UNK
     Dates: start: 20090501

REACTIONS (2)
  - HOSPITALISATION [None]
  - WEIGHT INCREASED [None]
